FAERS Safety Report 22186187 (Version 2)
Quarter: 2023Q2

REPORT INFORMATION
  Report Type: Spontaneous
  Country: FR (occurrence: None)
  Receive Date: 20230407
  Receipt Date: 20230413
  Transmission Date: 20230721
  Serious: Yes (Life-Threatening, Hospitalization, Other)
  Sender: FDA-Public Use
  Company Number: 2023A076946

PATIENT
  Age: 49 Year
  Sex: Male
  Weight: 81 kg

DRUGS (21)
  1. PROPOFOL [Suspect]
     Active Substance: PROPOFOL
     Indication: Sedation
     Dosage: UNK, UNSPECIFIED, UNINFORMED
     Route: 042
     Dates: start: 20201028, end: 20201029
  2. PROPOFOL [Suspect]
     Active Substance: PROPOFOL
     Indication: Sedation
     Route: 042
     Dates: start: 20201031, end: 20201104
  3. TICAGRELOR [Suspect]
     Active Substance: TICAGRELOR
     Indication: Acute myocardial infarction
     Route: 048
     Dates: start: 20201025, end: 20201104
  4. SUFENTANIL [Suspect]
     Active Substance: SUFENTANIL
     Indication: Sedation
     Dosage: 1 UG/KG
     Route: 042
     Dates: start: 20201101, end: 20201103
  5. SUFENTANIL [Suspect]
     Active Substance: SUFENTANIL
     Indication: Sedation
     Dosage: 1 UG/KG
     Route: 042
     Dates: start: 20201029, end: 20201030
  6. SUFENTANIL [Suspect]
     Active Substance: SUFENTANIL
     Indication: Sedation
     Dosage: 1 UG/KG
     Route: 042
     Dates: start: 20201025, end: 20201027
  7. CORDARONE [Suspect]
     Active Substance: AMIODARONE HYDROCHLORIDE
     Indication: Acute myocardial infarction
     Dosage: 300.0MG UNKNOWN
     Route: 042
     Dates: start: 20201025, end: 20201026
  8. CORDARONE [Suspect]
     Active Substance: AMIODARONE HYDROCHLORIDE
     Indication: Acute myocardial infarction
     Route: 048
     Dates: start: 20201027, end: 20201027
  9. BISOPROLOL [Suspect]
     Active Substance: BISOPROLOL
     Indication: Acute myocardial infarction
     Route: 048
     Dates: start: 20201031, end: 20201031
  10. BISOPROLOL [Suspect]
     Active Substance: BISOPROLOL
     Indication: Acute myocardial infarction
     Route: 048
     Dates: start: 20201102, end: 20201102
  11. BISOPROLOL [Suspect]
     Active Substance: BISOPROLOL
     Indication: Acute myocardial infarction
     Route: 048
     Dates: start: 20201030, end: 20201030
  12. BISOPROLOL [Suspect]
     Active Substance: BISOPROLOL
     Indication: Acute myocardial infarction
     Route: 048
     Dates: start: 20201031, end: 20201031
  13. BISOPROLOL [Suspect]
     Active Substance: BISOPROLOL
     Indication: Acute myocardial infarction
     Route: 048
     Dates: start: 20201030, end: 20201030
  14. ASPIRIN DL-LYSINE [Concomitant]
     Active Substance: ASPIRIN DL-LYSINE
     Indication: Acute myocardial infarction
     Route: 048
     Dates: start: 20201026
  15. HEPARIN SODIUM [Concomitant]
     Active Substance: HEPARIN SODIUM
     Indication: Acute myocardial infarction
     Dosage: 12000 IU
     Route: 042
     Dates: start: 20201027
  16. LANSOPRAZOLE [Concomitant]
     Active Substance: LANSOPRAZOLE
     Indication: Gastritis
     Route: 048
     Dates: start: 20201028
  17. CEFEPIME [Concomitant]
     Active Substance: CEFEPIME HYDROCHLORIDE
     Indication: Pneumonia aspiration
     Route: 042
     Dates: start: 20201030, end: 20201105
  18. CHLORPROMAZINE [Concomitant]
     Active Substance: CHLORPROMAZINE
     Indication: Product used for unknown indication
     Route: 042
     Dates: start: 20201103, end: 20201104
  19. CHLORPROMAZINE [Concomitant]
     Active Substance: CHLORPROMAZINE
     Indication: Product used for unknown indication
     Dosage: 25.0MG UNKNOWN
     Route: 042
     Dates: start: 20201102, end: 20201102
  20. METRONIDAZOLE [Concomitant]
     Active Substance: METRONIDAZOLE
     Indication: Pneumonia aspiration
     Dosage: 500 MG *3/JOUR
     Route: 042
     Dates: start: 20201029, end: 20201105
  21. TAHOR [Concomitant]
     Active Substance: ATORVASTATIN CALCIUM
     Indication: Acute myocardial infarction
     Route: 048
     Dates: start: 20201025

REACTIONS (1)
  - Atrioventricular block complete [Recovered/Resolved]

NARRATIVE: CASE EVENT DATE: 20201101
